FAERS Safety Report 6072042-4 (Version None)
Quarter: 2009Q1

REPORT INFORMATION
  Report Type: 
  Country: None (occurrence: None)
  Receive Date: 20090205
  Receipt Date: 20090205
  Transmission Date: 20090719
  Serious: Yes (Other)
  Sender: FDA-Public Use
  Company Number: None

PATIENT
  Age: 74 Year
  Sex: Male
  Weight: 73.4827 kg

DRUGS (1)
  1. METOPROLOL SUCCINATE [Suspect]
     Indication: HEART RATE INCREASED
     Dosage: VARIED ACCORDING TO HOW I FEL 2 IN AM 1 IN PM PO
     Route: 048
     Dates: start: 20070601, end: 20090130

REACTIONS (3)
  - HEART RATE IRREGULAR [None]
  - THERAPEUTIC RESPONSE UNEXPECTED WITH DRUG SUBSTITUTION [None]
  - VENTRICULAR EXTRASYSTOLES [None]
